FAERS Safety Report 23081990 (Version 1)
Quarter: 2023Q4

REPORT INFORMATION
  Report Type: Spontaneous
  Country: DE (occurrence: DE)
  Receive Date: 20231019
  Receipt Date: 20231019
  Transmission Date: 20240109
  Serious: Yes (Other)
  Sender: FDA-Public Use
  Company Number: DE-UCBSA-2023050010

PATIENT
  Sex: Male

DRUGS (1)
  1. BRIVIACT [Suspect]
     Active Substance: BRIVARACETAM
     Indication: Product used for unknown indication
     Dosage: 50 MILLIGRAM, 2X/DAY (BID) 1-0-1
     Dates: start: 202310, end: 202310

REACTIONS (2)
  - Influenza like illness [Unknown]
  - Gastrointestinal disorder [Unknown]

NARRATIVE: CASE EVENT DATE: 20231001
